FAERS Safety Report 4343674-6 (Version None)
Quarter: 2004Q2

REPORT INFORMATION
  Report Type: 
  Country: None (occurrence: None)
  Receive Date: 20040422
  Receipt Date: 20040413
  Transmission Date: 20050107
  Serious: Yes (Other)
  Sender: FDA-Public Use
  Company Number: JP-BRISTOL-MYERS SQUIBB COMPANY-12563664

PATIENT
  Age: 85 Year
  Sex: Female

DRUGS (4)
  1. DAIVONEX OINTMENT [Suspect]
     Indication: PSORIASIS
     Dates: start: 20030403
  2. CALCIUM LACTATE [Concomitant]
     Indication: OSTEOPOROSIS
     Dates: start: 20000101
  3. FUROSEMIDE [Concomitant]
     Indication: CARDIOMEGALY
  4. SODIUM CHLORIDE [Concomitant]

REACTIONS (2)
  - HYPERCALCAEMIA [None]
  - HYPERNATRAEMIA [None]
